FAERS Safety Report 4645053-0 (Version None)
Quarter: 2005Q2

REPORT INFORMATION
  Report Type: 
  Country: None (occurrence: None)
  Receive Date: 20050422
  Receipt Date: 20050412
  Transmission Date: 20051028
  Serious: Yes (Disabling)
  Sender: FDA-Public Use
  Company Number: 2005041552

PATIENT
  Age: 58 Year
  Sex: Female

DRUGS (3)
  1. AZITHROMYCIN [Suspect]
     Indication: PNEUMONIA
     Dosage: (250 MG), ORAL
     Route: 048
     Dates: start: 20040101, end: 20040101
  2. ERYTHROMYCIN [Suspect]
     Indication: ILL-DEFINED DISORDER
  3. VALPROATE SODIUM [Concomitant]

REACTIONS (10)
  - DIZZINESS [None]
  - DYSARTHRIA [None]
  - EYE SWELLING [None]
  - FEELING ABNORMAL [None]
  - LETHARGY [None]
  - MALAISE [None]
  - MIGRAINE [None]
  - PHOTOPHOBIA [None]
  - SENSORY DISTURBANCE [None]
  - VISUAL DISTURBANCE [None]
